FAERS Safety Report 8613983-0 (Version None)
Quarter: 2012Q3

REPORT INFORMATION
  Report Type: 
  Country: None (occurrence: None)
  Receive Date: 20120823
  Receipt Date: 20120820
  Transmission Date: 20120928
  Serious: No
  Sender: FDA-Public Use
  Company Number: US-PFIZER INC-2012205984

PATIENT
  Age: 55 Year
  Sex: Female
  Weight: 90.703 kg

DRUGS (1)
  1. RAPAMUNE [Suspect]
     Indication: PROPHYLAXIS AGAINST TRANSPLANT REJECTION
     Dosage: SIX TABLETS, DAILY
     Route: 048
     Dates: start: 20120501

REACTIONS (3)
  - CONSTIPATION [None]
  - OFF LABEL USE [None]
  - DIARRHOEA [None]
